FAERS Safety Report 19079394 (Version 2)
Quarter: 2021Q2

REPORT INFORMATION
  Report Type: Spontaneous
  Country: DE (occurrence: DE)
  Receive Date: 20210331
  Receipt Date: 20210407
  Transmission Date: 20210717
  Serious: Yes (Other)
  Sender: FDA-Public Use
  Company Number: DE-JNJFOC-20210354440

PATIENT
  Age: 79 Year
  Sex: Male
  Weight: 75 kg

DRUGS (8)
  1. CANDESARTAN CILEXETIL AND HYDROCHLOROTHIAZIDE [Concomitant]
     Active Substance: CANDESARTAN CILEXETIL\HYDROCHLOROTHIAZIDE
     Dosage: 1 DF, OM 16MG/10.5MG
  2. ALLOPURINOL. [Concomitant]
     Active Substance: ALLOPURINOL
     Dosage: 300
  3. DOPPELHERZ SYSTEM MAGNESIUM [Suspect]
     Active Substance: DIETARY SUPPLEMENT
     Indication: MUSCLE SPASMS
     Dosage: 200 MG, BID
     Route: 065
  4. LERCANIDIPINE [Concomitant]
     Active Substance: LERCANIDIPINE
     Dosage: 0.5 DF, BID
  5. XARELTO [Suspect]
     Active Substance: RIVAROXABAN
     Indication: ATRIAL FIBRILLATION
     Dosage: 20 MG, QD SINCE YEARS
     Route: 048
  6. EZETIMIB BETA [Concomitant]
     Active Substance: EZETIMIBE
     Dosage: 10
  7. SIMVA [Concomitant]
     Active Substance: SIMVASTATIN
     Dosage: 20
  8. DOPPELHERZ SYSTEM MAGNESIUM [Suspect]
     Active Substance: DIETARY SUPPLEMENT
     Dosage: 400 MG, BID
     Route: 065

REACTIONS (2)
  - Muscle spasms [Unknown]
  - Blood urine present [Recovered/Resolved]

NARRATIVE: CASE EVENT DATE: 2021
